FAERS Safety Report 20449833 (Version 1)
Quarter: 2022Q1

REPORT INFORMATION
  Report Type: Spontaneous
  Country: CZ (occurrence: CZ)
  Receive Date: 20220209
  Receipt Date: 20220209
  Transmission Date: 20220424
  Serious: Yes (Other)
  Sender: FDA-Public Use
  Company Number: CZ-Desitin-2022-00133

PATIENT
  Age: 4 Month
  Sex: Male

DRUGS (16)
  1. DIAZEPAM [Suspect]
     Active Substance: DIAZEPAM
     Indication: Seizure
     Route: 065
  2. PHENYTOIN [Suspect]
     Active Substance: PHENYTOIN
     Indication: Seizure
     Route: 065
  3. MIDAZOLAM [Suspect]
     Active Substance: MIDAZOLAM
     Indication: Myoclonic epilepsy
     Route: 042
  4. PHENOBARBITAL [Suspect]
     Active Substance: PHENOBARBITAL
     Indication: Myoclonic epilepsy
     Route: 042
  5. TOPIRAMATE [Suspect]
     Active Substance: TOPIRAMATE
     Indication: Seizure
     Route: 065
  6. ZONISAMIDE [Suspect]
     Active Substance: ZONISAMIDE
     Indication: Seizure
     Route: 065
  7. POTASSIUM BROMIDE [Suspect]
     Active Substance: POTASSIUM BROMIDE
     Indication: Seizure
     Route: 065
  8. VIGABATRIN [Suspect]
     Active Substance: VIGABATRIN
     Indication: Seizure
     Route: 065
  9. LEVETIRACETAM [Suspect]
     Active Substance: LEVETIRACETAM
     Indication: Myoclonic epilepsy
     Route: 042
  10. ACTH [Suspect]
     Active Substance: CORTICOTROPIN
     Indication: Seizure
     Route: 065
  11. THIOPENTAL [Suspect]
     Active Substance: THIOPENTAL
     Indication: Seizure
     Route: 065
  12. CLONAZEPAM [Suspect]
     Active Substance: CLONAZEPAM
     Indication: Seizure
     Route: 065
  13. STIRIPENTOL [Suspect]
     Active Substance: STIRIPENTOL
     Indication: Seizure
     Route: 065
  14. VALPROIC ACID [Suspect]
     Active Substance: VALPROIC ACID
     Indication: Seizure
     Route: 065
  15. PYRIDOXINE [Suspect]
     Active Substance: PYRIDOXINE
     Indication: Seizure
     Dosage: HIGH DOSES
     Route: 065
  16. CHLORAL HYDRATE [Suspect]
     Active Substance: CHLORAL HYDRATE
     Indication: Seizure
     Route: 065

REACTIONS (1)
  - Therapy non-responder [Unknown]
